FAERS Safety Report 4751812-6 (Version None)
Quarter: 2005Q3

REPORT INFORMATION
  Report Type: 
  Country: None (occurrence: None)
  Receive Date: 20050819
  Receipt Date: 20040729
  Transmission Date: 20060218
  Serious: Yes (Life-Threatening)
  Sender: FDA-Public Use
  Company Number: 235422

PATIENT
  Age: 76 Year
  Sex: Male
  Weight: 86.2 kg

DRUGS (5)
  1. NOVOLIN N [Suspect]
     Indication: INSULIN-REQUIRING TYPE II DIABETES MELLITUS
     Dosage: 23 IU, QD, SUBCUTANEOUS
     Route: 058
  2. LASIX [Concomitant]
  3. POTASSIUM [Concomitant]
  4. ASPIRIN [Concomitant]
  5. NOVOLIN R [Concomitant]

REACTIONS (1)
  - HYPOGLYCAEMIC COMA [None]
